FAERS Safety Report 22534982 (Version 1)
Quarter: 2023Q2

REPORT INFORMATION
  Report Type: Spontaneous
  Country: US (occurrence: None)
  Receive Date: 20230607
  Receipt Date: 20230607
  Transmission Date: 20230722
  Serious: Yes (Other)
  Sender: FDA-Public Use
  Company Number: None

PATIENT
  Age: 31 Year
  Sex: Male
  Weight: 90 kg

DRUGS (1)
  1. HERBALS\MITRAGYNINE [Suspect]
     Active Substance: HERBALS\MITRAGYNINE
     Indication: Joint injury
     Dates: start: 20190401, end: 20190516

REACTIONS (9)
  - Drug dependence [None]
  - Mood swings [None]
  - Anxiety [None]
  - Decreased appetite [None]
  - Aggression [None]
  - Drug tolerance [None]
  - Drug effect less than expected [None]
  - Personality change [None]
  - Withdrawal syndrome [None]
